FAERS Safety Report 20297668 (Version 1)
Quarter: 2022Q1

REPORT INFORMATION
  Report Type: Spontaneous
  Country: DE (occurrence: DE)
  Receive Date: 20220105
  Receipt Date: 20220105
  Transmission Date: 20220423
  Serious: Yes (Congenital Anomaly)
  Sender: FDA-Public Use
  Company Number: DE-EMBRYOTOX-202013041

PATIENT
  Age: 0 Year
  Sex: Male
  Weight: 3.45 kg

DRUGS (10)
  1. CETIRIZINE [Suspect]
     Active Substance: CETIRIZINE HYDROCHLORIDE
     Indication: Product used for unknown indication
     Route: 064
     Dates: start: 20201003, end: 20210704
  2. SYMBICORT [Suspect]
     Active Substance: BUDESONIDE\FORMOTEROL FUMARATE DIHYDRATE
     Indication: Product used for unknown indication
     Dosage: 320 [MICROG/D (2X160) ] / 9 [MICROG/D (2X4.5) ] 2 SEPARATED DOSES
     Route: 064
     Dates: start: 20201003, end: 20210704
  3. URSONORM [Concomitant]
     Indication: Product used for unknown indication
     Dosage: 750 [MG/D (3X250) ]
     Route: 064
     Dates: start: 20210622, end: 20210704
  4. LACHGAS [Concomitant]
     Indication: Product used for unknown indication
     Route: 064
  5. DIETARY SUPPLEMENT\HERBALS [Concomitant]
     Active Substance: DIETARY SUPPLEMENT\HERBALS
     Indication: Product used for unknown indication
     Route: 064
  6. SULTANOL [Concomitant]
     Active Substance: ALBUTEROL SULFATE
     Indication: Product used for unknown indication
     Dosage: NO MORE THAN 4 TIMES DURING THE ENTIRE PREGNANCY
     Route: 064
  7. REPEVAX [Concomitant]
     Active Substance: DIPHTHERIA AND TETANUS TOXOIDS AND ACELLULAR PERTUSSIS ADSORBED AND INACTIVATED POLIOVIRUS VACCINE
     Indication: Product used for unknown indication
     Route: 064
     Dates: start: 20210518, end: 20210518
  8. COMIRNATY [Concomitant]
     Active Substance: TOZINAMERAN
     Indication: Product used for unknown indication
     Route: 064
     Dates: start: 20210526, end: 20210526
  9. COMIRNATY [Concomitant]
     Active Substance: TOZINAMERAN
     Indication: COVID-19 immunisation
     Route: 064
     Dates: start: 20210630, end: 20210630
  10. ASPIRIN [Concomitant]
     Active Substance: ASPIRIN
     Indication: Product used for unknown indication
     Route: 064

REACTIONS (2)
  - Kidney duplex [Unknown]
  - Foetal exposure during pregnancy [Unknown]
